FAERS Safety Report 14208123 (Version 6)
Quarter: 2018Q2

REPORT INFORMATION
  Report Type: Report from Study
  Country: US (occurrence: US)
  Receive Date: 20171121
  Receipt Date: 20180514
  Transmission Date: 20180711
  Serious: Yes (Hospitalization, Other)
  Sender: FDA-Public Use
  Company Number: US-JNJFOC-20170812846

PATIENT
  Age: 73 Year
  Sex: Female

DRUGS (15)
  1. NORCO [Concomitant]
     Active Substance: ACETAMINOPHEN\HYDROCODONE BITARTRATE
     Indication: PAIN IN EXTREMITY
     Dosage: 3 TO 4 TABLETS PRN
  2. PLAVIX [Concomitant]
     Active Substance: CLOPIDOGREL BISULFATE
     Indication: MIGRAINE
     Dosage: 75 MG, QD
  3. IMBRUVICA [Suspect]
     Active Substance: IBRUTINIB
     Indication: WALDENSTROM^S MACROGLOBULINAEMIA
     Dosage: 420 MG, QD
     Route: 048
     Dates: start: 20171010
  4. TYLENOL [Suspect]
     Active Substance: ACETAMINOPHEN
     Indication: PRODUCT USED FOR UNKNOWN INDICATION
     Route: 065
  5. IBUPROFEN. [Suspect]
     Active Substance: IBUPROFEN
     Indication: PRODUCT USED FOR UNKNOWN INDICATION
     Route: 065
  6. NORCO [Concomitant]
     Active Substance: ACETAMINOPHEN\HYDROCODONE BITARTRATE
     Indication: PAIN IN EXTREMITY
     Dosage: HALF TABLET, PRN
  7. IBUPROFEN. [Suspect]
     Active Substance: IBUPROFEN
     Route: 065
  8. NORCO [Concomitant]
     Active Substance: ACETAMINOPHEN\HYDROCODONE BITARTRATE
     Indication: NECK PAIN
     Dosage: HALF TABLET, PRN
  9. INDERAL [Concomitant]
     Active Substance: PROPRANOLOL HYDROCHLORIDE
     Indication: HYPERTENSION
     Dosage: 10 MG, QD,
     Route: 048
  10. INDERAL [Concomitant]
     Active Substance: PROPRANOLOL HYDROCHLORIDE
     Indication: HYPERTENSION
     Dosage: 20 MG, QHS
     Route: 048
  11. IMBRUVICA [Suspect]
     Active Substance: IBRUTINIB
     Indication: WALDENSTROM^S MACROGLOBULINAEMIA
     Dosage: 420 MG, QD
     Route: 048
     Dates: start: 20170410, end: 20170927
  12. TYLENOL [Suspect]
     Active Substance: ACETAMINOPHEN
     Indication: PRODUCT USED FOR UNKNOWN INDICATION
     Route: 065
  13. ZYRTEC [Concomitant]
     Active Substance: CETIRIZINE HYDROCHLORIDE
     Indication: HYPERSENSITIVITY
  14. FLONASE [Concomitant]
     Active Substance: FLUTICASONE PROPIONATE
     Indication: HYPERSENSITIVITY
  15. NORCO [Concomitant]
     Active Substance: ACETAMINOPHEN\HYDROCODONE BITARTRATE
     Indication: NECK PAIN
     Dosage: 3 TO 4 TABLETS PRN

REACTIONS (21)
  - Pneumonia [Unknown]
  - Bone pain [Not Recovered/Not Resolved]
  - Laryngitis [Unknown]
  - Blood pressure increased [Recovering/Resolving]
  - Vascular stent occlusion [Unknown]
  - Laboratory test abnormal [Unknown]
  - Blood immunoglobulin M increased [Recovering/Resolving]
  - Hypersensitivity [Not Recovered/Not Resolved]
  - Bronchitis [Recovered/Resolved]
  - Rotator cuff syndrome [Unknown]
  - Head discomfort [Not Recovered/Not Resolved]
  - Musculoskeletal pain [Unknown]
  - Blood thyroid stimulating hormone increased [Unknown]
  - Myalgia [Not Recovered/Not Resolved]
  - Arthralgia [Recovering/Resolving]
  - Contusion [Not Recovered/Not Resolved]
  - Diarrhoea [Recovered/Resolved]
  - Pain in extremity [Recovering/Resolving]
  - Nausea [Unknown]
  - Night sweats [Recovering/Resolving]
  - Asthenia [Recovering/Resolving]

NARRATIVE: CASE EVENT DATE: 2017
